FAERS Safety Report 5800713-0 (Version None)
Quarter: 2008Q3

REPORT INFORMATION
  Report Type: 
  Country: None (occurrence: None)
  Receive Date: 20080701
  Receipt Date: 20080616
  Transmission Date: 20090109
  Serious: Yes (Other)
  Sender: FDA-Public Use
  Company Number: DSU-2008-00904

PATIENT
  Age: 83 Year
  Sex: Female

DRUGS (1)
  1. OLMETEC HCT (HYDROCHLOROTHIAZIDE, OLMESARTAN MEDOXOMIL) (TABLET) (HYDR [Suspect]
     Indication: BLOOD PRESSURE MANAGEMENT
     Dosage: 20/12.5 MG (QD), PER ORAL
     Route: 048
     Dates: start: 20080319

REACTIONS (1)
  - NEPHROLITHIASIS [None]
